FAERS Safety Report 14587912 (Version 1)
Quarter: 2018Q1

REPORT INFORMATION
  Report Type: Spontaneous
  Country: FI (occurrence: FI)
  Receive Date: 20180301
  Receipt Date: 20180301
  Transmission Date: 20180509
  Serious: Yes (Other)
  Sender: FDA-Public Use
  Company Number: FI-BAYER-2017-133033

PATIENT
  Age: 46 Year
  Sex: Female
  Weight: 105 kg

DRUGS (7)
  1. MIRENA [Suspect]
     Active Substance: LEVONORGESTREL
  2. CANDESARTAN CILEXETIL. [Concomitant]
     Active Substance: CANDESARTAN CILEXETIL
     Indication: BLOOD PRESSURE INCREASED
     Dosage: UNK
  3. HYDREX [Concomitant]
     Indication: BLOOD PRESSURE INCREASED
     Dosage: UNK
  4. MIRENA [Suspect]
     Active Substance: LEVONORGESTREL
     Dosage: 20 MCG/24HR, CONT
     Route: 015
     Dates: start: 20170426, end: 20170711
  5. MIRENA [Suspect]
     Active Substance: LEVONORGESTREL
     Dosage: 20 MCG/24HR, CONT
     Route: 015
     Dates: start: 20110601, end: 20170426
  6. MIRENA [Suspect]
     Active Substance: LEVONORGESTREL
     Dosage: 20 ?G, UNK
     Route: 015
     Dates: start: 20110601, end: 20170711
  7. THYROXIN [Concomitant]
     Active Substance: LEVOTHYROXINE
     Indication: HYPOTHYROIDISM
     Dosage: UNK
     Dates: start: 2008

REACTIONS (11)
  - Fatigue [Unknown]
  - Vaginal haemorrhage [Unknown]
  - Amenorrhoea [Unknown]
  - Genital haemorrhage [Unknown]
  - Abdominal distension [Unknown]
  - Weight increased [Unknown]
  - Alopecia [Recovering/Resolving]
  - Alopecia [Not Recovered/Not Resolved]
  - Sleep apnoea syndrome [Unknown]
  - Mood swings [Unknown]
  - Loss of libido [Unknown]
